FAERS Safety Report 5499722-3 (Version None)
Quarter: 2007Q4

REPORT INFORMATION
  Report Type: 
  Country: None (occurrence: None)
  Receive Date: 20071026
  Receipt Date: 20071016
  Transmission Date: 20080405
  Serious: Yes (Death)
  Sender: FDA-Public Use
  Company Number: DE-PFIZER INC-2007064917

PATIENT
  Sex: Male
  Weight: 80 kg

DRUGS (8)
  1. VFEND [Suspect]
     Indication: CEREBRAL ASPERGILLOSIS
     Route: 042
  2. AMPHOTERICIN B [Concomitant]
  3. KEPPRA [Concomitant]
  4. SANDIMMUNE [Concomitant]
  5. AMBISOME [Concomitant]
  6. PRIMAXIN [Concomitant]
  7. VANCOMYCIN [Concomitant]
  8. CIPRO [Concomitant]

REACTIONS (2)
  - MUCOSAL HAEMORRHAGE [None]
  - TRANSAMINASES INCREASED [None]
